FAERS Safety Report 8139056-1 (Version None)
Quarter: 2012Q1

REPORT INFORMATION
  Report Type: 
  Country: None (occurrence: None)
  Receive Date: 20120215
  Receipt Date: 20120201
  Transmission Date: 20120608
  Serious: Yes (Death, Hospitalization)
  Sender: FDA-Public Use
  Company Number: US-UCBSA-049622

PATIENT
  Age: 69 Year
  Sex: Female

DRUGS (10)
  1. GRAPE SEED [Concomitant]
     Dosage: DAILY: 100MG
     Route: 048
  2. M.V.I. [Concomitant]
     Dosage: ON TAB DAILY
  3. COMBIVIRPO [Concomitant]
     Dosage: DAILY
     Route: 048
  4. KEPPRA [Suspect]
     Route: 048
     Dates: start: 20100326
  5. VIMPAT [Suspect]
     Route: 048
     Dates: start: 20111215, end: 20111227
  6. ALPRAZOLAM [Suspect]
     Route: 048
  7. FERROUS SULFATE TAB [Concomitant]
     Dosage: DAILY :325 MG
  8. METOCLOPRAMIDE [Concomitant]
  9. KALETRA [Concomitant]
     Indication: HIV INFECTION
     Dosage: 200MG/50MGX2TABS BID
  10. ETODOLAC [Concomitant]
     Dosage: DAILY:400MG
     Route: 048

REACTIONS (4)
  - DEATH [None]
  - TOXIC EPIDERMAL NECROLYSIS [None]
  - BLOOD PRESSURE INCREASED [None]
  - BLOOD PRESSURE INADEQUATELY CONTROLLED [None]
